FAERS Safety Report 17948237 (Version 5)
Quarter: 2020Q3

REPORT INFORMATION
  Report Type: Spontaneous
  Country: KR (occurrence: KR)
  Receive Date: 20200626
  Receipt Date: 20200720
  Transmission Date: 20201103
  Serious: Yes (Hospitalization)
  Sender: FDA-Public Use
  Company Number: KR-ABBVIE-20K-090-3460024-00

PATIENT
  Age: 50 Year
  Sex: Male

DRUGS (2)
  1. MAVIRET [Suspect]
     Active Substance: GLECAPREVIR\PIBRENTASVIR
     Dosage: 1 WEEK FROM DISCONTINUATION
     Route: 048
     Dates: start: 20200616
  2. MAVIRET [Suspect]
     Active Substance: GLECAPREVIR\PIBRENTASVIR
     Indication: HEPATITIS C
     Dosage: DURATION: 2 WEEKS
     Route: 048
     Dates: start: 20200525, end: 20200608

REACTIONS (3)
  - Intentional product misuse [Unknown]
  - Procedural haemorrhage [Recovered/Resolved]
  - Benign prostatic hyperplasia [Recovered/Resolved]

NARRATIVE: CASE EVENT DATE: 202006
